FAERS Safety Report 11319607 (Version 1)
Quarter: 2015Q3

REPORT INFORMATION
  Report Type: Report from Study
  Country: AU (occurrence: AU)
  Receive Date: 20150729
  Receipt Date: 20150729
  Transmission Date: 20151125
  Serious: Yes (Death)
  Sender: FDA-Public Use
  Company Number: PHHY2015AU090691

PATIENT
  Age: 66 Year
  Sex: Male

DRUGS (1)
  1. CLOZARIL [Suspect]
     Active Substance: CLOZAPINE
     Indication: SCHIZOPHRENIA
     Dosage: 150 OT, UNK
     Route: 048
     Dates: start: 20050117

REACTIONS (1)
  - Death [Fatal]

NARRATIVE: CASE EVENT DATE: 20150630
